FAERS Safety Report 16239507 (Version 6)
Quarter: 2019Q4

REPORT INFORMATION
  Report Type: Spontaneous
  Country: US (occurrence: US)
  Receive Date: 20190425
  Receipt Date: 20191202
  Transmission Date: 20200122
  Serious: Yes (Other)
  Sender: FDA-Public Use
  Company Number: US-PFIZER INC-2016171211

PATIENT
  Age: 52 Year
  Sex: Male
  Weight: 87 kg

DRUGS (5)
  1. LYRICA [Suspect]
     Active Substance: PREGABALIN
     Indication: NEURALGIA
     Dosage: 75 MG, 2X/DAY (MAX DAILY AMOUNT: 150 MG)
     Route: 048
     Dates: start: 20160229
  2. LYRICA [Suspect]
     Active Substance: PREGABALIN
     Indication: FIBROMYALGIA
     Dosage: UNK, 2X/DAY
     Route: 048
     Dates: start: 200405
  3. LYRICA [Suspect]
     Active Substance: PREGABALIN
     Indication: SPINAL CORD INJURY
     Dosage: 75 MG, 2X/DAY (MAX DAILY AMOUNT: 150 MG)
     Route: 048
     Dates: start: 20160831
  4. LYRICA [Suspect]
     Active Substance: PREGABALIN
     Dosage: 225 MG, 2X/DAY (MAX DAILY AMOUNT: 450 MG)
     Route: 048
  5. LYRICA [Suspect]
     Active Substance: PREGABALIN
     Indication: POLYNEUROPATHY
     Dosage: 75 MG, 3X/DAY (MAX DAILY AMOUNT: 225 MG)
     Route: 048
     Dates: start: 20170308

REACTIONS (3)
  - Memory impairment [Recovered/Resolved]
  - Weight increased [Not Recovered/Not Resolved]
  - Daydreaming [Unknown]

NARRATIVE: CASE EVENT DATE: 200405
